FAERS Safety Report 9603725 (Version 4)
Quarter: 2014Q3

REPORT INFORMATION
  Report Type: Spontaneous
  Country: US (occurrence: US)
  Receive Date: 20131007
  Receipt Date: 20140903
  Transmission Date: 20150326
  Serious: Yes (Death, Congenital Anomaly, Other)
  Sender: FDA-Public Use
  Company Number: US-ABBVIE-13P-163-1154276-00

PATIENT

DRUGS (4)
  1. DEPAKENE [Suspect]
     Active Substance: VALPROIC ACID
     Route: 050
  2. DEPAKOTE [Suspect]
     Active Substance: DIVALPROEX SODIUM
     Indication: PATERNAL DRUGS AFFECTING FOETUS
     Route: 050
  3. DEPAKOTE [Suspect]
     Active Substance: DIVALPROEX SODIUM
     Route: 064
  4. DEPAKENE [Suspect]
     Active Substance: VALPROIC ACID
     Indication: PATERNAL DRUGS AFFECTING FOETUS
     Route: 064

REACTIONS (6)
  - Foetal exposure during pregnancy [Unknown]
  - Foetal anticonvulsant syndrome [Unknown]
  - Gastrooesophageal reflux disease [Unknown]
  - Death [Fatal]
  - Paternal drugs affecting foetus [Unknown]
  - Apparent life threatening event [Unknown]
